FAERS Safety Report 20027546 (Version 1)
Quarter: 2021Q4

REPORT INFORMATION
  Report Type: Spontaneous
  Country: US (occurrence: US)
  Receive Date: 20211103
  Receipt Date: 20211103
  Transmission Date: 20220303
  Serious: Yes (Other)
  Sender: FDA-Public Use
  Company Number: US-NOVOPROD-861850

PATIENT
  Sex: Female

DRUGS (1)
  1. LEVEMIR [Suspect]
     Active Substance: INSULIN DETEMIR
     Indication: Type 2 diabetes mellitus
     Dosage: 34 IU, QD
     Route: 058
     Dates: start: 2008

REACTIONS (3)
  - Cataract [Unknown]
  - Neuropathy peripheral [Unknown]
  - Arthritis [Unknown]

NARRATIVE: CASE EVENT DATE: 20150101
